FAERS Safety Report 14148225 (Version 2)
Quarter: 2017Q4

REPORT INFORMATION
  Report Type: Spontaneous
  Country: IN (occurrence: IN)
  Receive Date: 20171101
  Receipt Date: 20171215
  Transmission Date: 20180321
  Serious: Yes (Other)
  Sender: FDA-Public Use
  Company Number: IN-CONCORDIA PHARMACEUTICALS INC.-E2B_00008448

PATIENT
  Age: 52 Year
  Sex: Female

DRUGS (14)
  1. PREDNISOLONE. [Suspect]
     Active Substance: PREDNISOLONE
     Indication: POLYMYOSITIS
     Route: 065
     Dates: start: 2013, end: 2013
  2. PREDNISOLONE. [Suspect]
     Active Substance: PREDNISOLONE
     Dates: start: 2013
  3. METFORMIN [Concomitant]
     Active Substance: METFORMIN HYDROCHLORIDE
     Indication: DIABETES MELLITUS
     Dates: start: 2013
  4. PREDNISOLONE. [Suspect]
     Active Substance: PREDNISOLONE
     Dates: start: 2013, end: 2013
  5. METHOTREXATE. [Suspect]
     Active Substance: METHOTREXATE
     Indication: POLYMYOSITIS
     Route: 048
     Dates: start: 2013, end: 2013
  6. METHOTREXATE. [Suspect]
     Active Substance: METHOTREXATE
     Dates: start: 2013, end: 2013
  7. LEVOTHYROXINE. [Concomitant]
     Active Substance: LEVOTHYROXINE
     Indication: HYPOTHYROIDISM
  8. METHOTREXATE. [Suspect]
     Active Substance: METHOTREXATE
     Dates: start: 2013
  9. METHOTREXATE. [Suspect]
     Active Substance: METHOTREXATE
     Route: 048
     Dates: start: 2013, end: 2013
  10. METHOTREXATE. [Suspect]
     Active Substance: METHOTREXATE
     Dates: start: 2013, end: 2013
  11. METHOTREXATE. [Suspect]
     Active Substance: METHOTREXATE
     Dates: start: 2013, end: 2013
  12. TELMISARTAN 80 MG, HYDROCHLOROTHIAZIDE 12.5 MG [Concomitant]
     Indication: HYPERTENSION
  13. PREDNISOLONE. [Suspect]
     Active Substance: PREDNISOLONE
     Dates: start: 2013, end: 2013
  14. INSULIN [Concomitant]
     Active Substance: INSULIN NOS
     Indication: DIABETES MELLITUS
     Dates: start: 2013

REACTIONS (4)
  - Cellulitis [Unknown]
  - Disseminated tuberculosis [Recovered/Resolved]
  - Diabetes mellitus [Recovered/Resolved]
  - Drug ineffective [Unknown]

NARRATIVE: CASE EVENT DATE: 2013
